FAERS Safety Report 4329755-1 (Version None)
Quarter: 2004Q2

REPORT INFORMATION
  Report Type: 
  Country: None (occurrence: None)
  Receive Date: 20040401
  Receipt Date: 20040317
  Transmission Date: 20050107
  Serious: Yes (Life-Threatening, Hospitalization)
  Sender: FDA-Public Use
  Company Number: RU-GLAXOSMITHKLINE-B0327222A

PATIENT
  Age: 62 Year
  Sex: Male

DRUGS (2)
  1. VENTOLIN [Suspect]
     Indication: REVERSIBLE AIRWAYS OBSTRUCTION
     Dosage: 2.5MG UNKNOWN
     Route: 055
     Dates: start: 20040218, end: 20040218
  2. METHYLPREDNISOLONE [Concomitant]
     Indication: ASTHMA
     Dosage: 4MG SIX TIMES PER DAY
     Route: 048

REACTIONS (8)
  - ACUTE CORONARY SYNDROME [None]
  - APNOEA [None]
  - BLOOD PRESSURE INCREASED [None]
  - CYANOSIS CENTRAL [None]
  - DEPRESSED LEVEL OF CONSCIOUSNESS [None]
  - HEART RATE INCREASED [None]
  - OXYGEN SATURATION DECREASED [None]
  - VENTRICULAR HYPOKINESIA [None]
